FAERS Safety Report 11419722 (Version 1)
Quarter: 2015Q3

REPORT INFORMATION
  Report Type: Report from Study
  Country: US (occurrence: US)
  Receive Date: 20150826
  Receipt Date: 20150826
  Transmission Date: 20151125
  Serious: Yes (Hospitalization)
  Sender: FDA-Public Use
  Company Number: US-UNITED THERAPEUTICS LTD.-UTC-010737

PATIENT
  Age: 54 Year
  Sex: Female
  Weight: 50 kg

DRUGS (11)
  1. DIGOXIN. [Concomitant]
     Active Substance: DIGOXIN
     Indication: PULMONARY ARTERIAL HYPERTENSION
     Dates: start: 20090917
  2. ARAVA [Concomitant]
     Active Substance: LEFLUNOMIDE
     Indication: RHEUMATOID ARTHRITIS
     Dates: start: 20100325
  3. REVATIO [Concomitant]
     Active Substance: SILDENAFIL CITRATE
     Indication: PULMONARY ARTERIAL HYPERTENSION
     Route: 048
     Dates: start: 20110817
  4. UT-15C SR [Suspect]
     Active Substance: TREPROSTINIL DIOLAMINE
     Indication: PULMONARY ARTERIAL HYPERTENSION
     Route: 048
     Dates: start: 20090606
  5. UT-15C SR [Suspect]
     Active Substance: TREPROSTINIL DIOLAMINE
     Route: 048
     Dates: start: 20110927
  6. TRACLEER [Concomitant]
     Active Substance: BOSENTAN
     Indication: PULMONARY ARTERIAL HYPERTENSION
     Route: 048
     Dates: start: 20110812, end: 20111008
  7. UT-15C SR [Suspect]
     Active Substance: TREPROSTINIL DIOLAMINE
     Route: 048
     Dates: start: 20111018
  8. UT-15C SR [Suspect]
     Active Substance: TREPROSTINIL DIOLAMINE
     Route: 048
     Dates: start: 20111027
  9. UT-15C SR [Suspect]
     Active Substance: TREPROSTINIL DIOLAMINE
     Route: 048
     Dates: start: 20120620
  10. UT-15C SR [Suspect]
     Active Substance: TREPROSTINIL DIOLAMINE
     Route: 048
     Dates: start: 20111021
  11. UT-15C SR [Suspect]
     Active Substance: TREPROSTINIL DIOLAMINE
     Route: 048
     Dates: start: 20111024

REACTIONS (21)
  - Electrocardiogram T wave abnormal [None]
  - Electrocardiogram T wave inversion [None]
  - Diarrhoea [None]
  - Autoimmune hepatitis [None]
  - Alanine aminotransferase increased [None]
  - Myalgia [None]
  - Pneumococcal infection [None]
  - Right ventricular hypertrophy [None]
  - Pneumonia bacterial [Recovered/Resolved]
  - Headache [None]
  - Vomiting [None]
  - Hypotension [None]
  - Bundle branch block right [None]
  - Electrocardiogram repolarisation abnormality [None]
  - Aspartate aminotransferase increased [None]
  - Dyspepsia [None]
  - Pleural effusion [None]
  - Nausea [None]
  - Sinus tachycardia [None]
  - Ventricular extrasystoles [None]
  - Fatigue [None]

NARRATIVE: CASE EVENT DATE: 20111002
